FAERS Safety Report 8460383-2 (Version None)
Quarter: 2012Q2

REPORT INFORMATION
  Report Type: 
  Country: None (occurrence: None)
  Receive Date: 20120323
  Receipt Date: 20111216
  Transmission Date: 20120825
  Serious: Yes (Other)
  Sender: FDA-Public Use
  Company Number: 163-21880-11110153

PATIENT
  Age: 57 Year
  Sex: Male

DRUGS (6)
  1. EFFEXOR [Concomitant]
  2. REVLIMID [Suspect]
     Indication: MULTIPLE MYELOMA
     Dosage: 25 MG, DAILY 21/28 DAYS, PO
     Route: 048
     Dates: start: 20111001
  3. FENTANYL [Concomitant]
  4. GABAPENTIN [Concomitant]
  5. RITALIN [Concomitant]
  6. DECADRON [Concomitant]

REACTIONS (1)
  - VENOUS THROMBOSIS LIMB [None]
